FAERS Safety Report 6344356-1 (Version None)
Quarter: 2009Q3

REPORT INFORMATION
  Report Type: 
  Country: None (occurrence: None)
  Receive Date: 20090908
  Receipt Date: 20090831
  Transmission Date: 20100115
  Serious: Yes (Hospitalization, Other)
  Sender: FDA-Public Use
  Company Number: US-AMGEN-QUU329041

PATIENT
  Sex: Female

DRUGS (3)
  1. ENBREL [Suspect]
     Indication: RHEUMATOID ARTHRITIS
     Route: 058
     Dates: start: 19990101
  2. FENTANYL [Concomitant]
  3. UNSPECIFIED MEDICATION [Concomitant]

REACTIONS (14)
  - ABDOMINAL DISCOMFORT [None]
  - EMOTIONAL DISORDER [None]
  - ERYTHEMA [None]
  - INJECTION SITE ERYTHEMA [None]
  - PAIN [None]
  - PNEUMONIA [None]
  - PRURITUS [None]
  - RASH [None]
  - RESPIRATORY DEPRESSION [None]
  - RHEUMATOID ARTHRITIS [None]
  - SENSORY LOSS [None]
  - SKIN CHAPPED [None]
  - SKIN FISSURES [None]
  - SKIN HAEMORRHAGE [None]
